FAERS Safety Report 5203550-3 (Version None)
Quarter: 2007Q1

REPORT INFORMATION
  Report Type: 
  Country: None (occurrence: None)
  Receive Date: 20070110
  Receipt Date: 20070105
  Transmission Date: 20070707
  Serious: Yes (Other)
  Sender: FDA-Public Use
  Company Number: US-GLAXOSMITHKLINE-A0634525A

PATIENT
  Age: 70 Year
  Sex: Female

DRUGS (4)
  1. ADVAIR DISKUS 100/50 [Suspect]
     Indication: CHRONIC OBSTRUCTIVE PULMONARY DISEASE
     Dosage: 1PUFF TWICE PER DAY
     Route: 055
  2. IPRATROPIUM BROMIDE [Concomitant]
  3. XOPENEX [Concomitant]
  4. XANAX [Concomitant]

REACTIONS (9)
  - CONFUSIONAL STATE [None]
  - DYSPHAGIA [None]
  - DYSPHONIA [None]
  - MEMORY IMPAIRMENT [None]
  - MIDDLE INSOMNIA [None]
  - NAUSEA [None]
  - PALPITATIONS [None]
  - URINARY INCONTINENCE [None]
  - WEIGHT INCREASED [None]
